FAERS Safety Report 9775512 (Version 1)
Quarter: 2013Q4

REPORT INFORMATION
  Report Type: Spontaneous
  Country: US (occurrence: US)
  Receive Date: 20131220
  Receipt Date: 20131220
  Transmission Date: 20140711
  Serious: Yes (Hospitalization)
  Sender: FDA-Public Use
  Company Number: US-PFIZER INC-2013363137

PATIENT
  Age: 55 Year
  Sex: Female
  Weight: 52.2 kg

DRUGS (2)
  1. PREMARIN [Suspect]
     Dosage: 0.625 MG, 1X/DAY
     Route: 048
  2. EFFEXOR XR [Suspect]
     Indication: DEPRESSION
     Dosage: 225 MG, DAILY (AT ONE CAPSULE OF 150MG AND ONE CAPSULE OF 75MG DAILY)
     Route: 048

REACTIONS (2)
  - Anaemia [Unknown]
  - Malaise [Unknown]
